FAERS Safety Report 8829321 (Version 1)
Quarter: 2012Q4

REPORT INFORMATION
  Report Type: Spontaneous
  Country: US (occurrence: None)
  Receive Date: 20121005
  Receipt Date: 20121005
  Transmission Date: 20130627
  Serious: Yes (Other)
  Sender: FDA-Public Use
  Company Number: None

PATIENT
  Age: 85 Year
  Sex: Female

DRUGS (1)
  1. FLECAINIDE [Suspect]
     Indication: DRUG THERAPY CHANGED
     Dosage: 1 tablet Twice a day
     Dates: start: 201204, end: 201209

REACTIONS (1)
  - Skin exfoliation [None]
